FAERS Safety Report 12346031 (Version 1)
Quarter: 2016Q2

REPORT INFORMATION
  Report Type: Spontaneous
  Country: US (occurrence: US)
  Receive Date: 20160509
  Receipt Date: 20160509
  Transmission Date: 20160815
  Serious: No
  Sender: FDA-Public Use
  Company Number: US-BAYER-2016-087487

PATIENT
  Age: 55 Year
  Sex: Female
  Weight: 53.61 kg

DRUGS (9)
  1. FISH OIL [Concomitant]
     Active Substance: FISH OIL
  2. DIOVAN [Concomitant]
     Active Substance: VALSARTAN
  3. DEXILANT [Concomitant]
     Active Substance: DEXLANSOPRAZOLE
  4. MIRALAX [Suspect]
     Active Substance: POLYETHYLENE GLYCOL 3350
     Indication: INTESTINAL TRANSIT TIME
     Dosage: 1 DF, BID
     Route: 048
     Dates: start: 2015
  5. MIRALAX [Suspect]
     Active Substance: POLYETHYLENE GLYCOL 3350
     Indication: INTESTINAL TRANSIT TIME
     Dosage: 1 DF, BID
     Route: 048
     Dates: start: 2015
  6. POTASSIUM [Concomitant]
     Active Substance: POTASSIUM
  7. ALLOPURINOL. [Concomitant]
     Active Substance: ALLOPURINOL
  8. DIPYRONE [Concomitant]
     Active Substance: DIPYRONE
  9. LANSOX [Concomitant]
     Active Substance: LANSOPRAZOLE

REACTIONS (1)
  - Product use issue [None]

NARRATIVE: CASE EVENT DATE: 2015
